FAERS Safety Report 6329751-9 (Version None)
Quarter: 2009Q3

REPORT INFORMATION
  Report Type: 
  Country: None (occurrence: None)
  Receive Date: 20090826
  Receipt Date: 20090819
  Transmission Date: 20100115
  Serious: Yes (Other)
  Sender: FDA-Public Use
  Company Number: GB-TEVA-206733ISR

PATIENT
  Age: 74 Year
  Sex: Male

DRUGS (3)
  1. ATENOLOL [Suspect]
  2. METHOTREXATE [Suspect]
     Indication: RHEUMATOID ARTHRITIS
  3. BENDROFLUMETHIAZIDE [Suspect]

REACTIONS (1)
  - MOUTH ULCERATION [None]
